FAERS Safety Report 10393125 (Version 2)
Quarter: 2014Q3

REPORT INFORMATION
  Report Type: Spontaneous
  Country: BR (occurrence: BR)
  Receive Date: 20140819
  Receipt Date: 20140911
  Transmission Date: 20150326
  Serious: Yes (Other)
  Sender: FDA-Public Use
  Company Number: BR-PFIZER INC-2014227840

PATIENT
  Sex: Female

DRUGS (2)
  1. PREMARIN [Suspect]
     Active Substance: ESTROGENS, CONJUGATED
     Dosage: UNK
     Route: 048
     Dates: start: 2013
  2. MORESTIN [Concomitant]

REACTIONS (3)
  - Chest discomfort [Unknown]
  - Limb discomfort [Unknown]
  - Headache [Unknown]

NARRATIVE: CASE EVENT DATE: 201406
